FAERS Safety Report 19359373 (Version 2)
Quarter: 2021Q2

REPORT INFORMATION
  Report Type: Spontaneous
  Country: TR (occurrence: TR)
  Receive Date: 20210601
  Receipt Date: 20210610
  Transmission Date: 20210717
  Serious: Yes (Hospitalization, Other)
  Sender: FDA-Public Use
  Company Number: TR-SA-2021SA178036

PATIENT
  Age: 10 Year
  Sex: Female

DRUGS (7)
  1. TOPOTECAN [Concomitant]
     Active Substance: TOPOTECAN HYDROCHLORIDE
     Indication: CHEMOTHERAPY
     Dosage: 2 MG/M2, QD
  2. OXALIPLATIN. [Suspect]
     Active Substance: OXALIPLATIN
     Dosage: 300 MG/M2, QCY
     Route: 033
  3. IRINOTECAN [Concomitant]
     Active Substance: IRINOTECAN
     Indication: DESMOPLASTIC SMALL ROUND CELL TUMOUR
     Dosage: 175 MG/M2, QD
  4. CYCLOPHOSPHAMIDE. [Concomitant]
     Active Substance: CYCLOPHOSPHAMIDE
     Indication: CHEMOTHERAPY
     Dosage: 2.1 G/M2, QD
  5. OXALIPLATIN. [Suspect]
     Active Substance: OXALIPLATIN
     Indication: DESMOPLASTIC SMALL ROUND CELL TUMOUR
     Dosage: 85 MG/M2, QD
  6. IRINOTECAN [Concomitant]
     Active Substance: IRINOTECAN
     Dosage: 200 MG/M2, QCY
     Route: 033
  7. GEMCITABINE HYDROCHLORIDE. [Concomitant]
     Active Substance: GEMCITABINE HYDROCHLORIDE
     Indication: CHEMOTHERAPY
     Dosage: 1000 MG/M2, QD (1, 8, 15 DAYS)

REACTIONS (3)
  - Nephropathy toxic [Recovered/Resolved]
  - Hypokalaemia [Recovered/Resolved]
  - Renal tubular disorder [Recovered/Resolved]
